FAERS Safety Report 8173945 (Version 3)
Quarter: 2013Q2

REPORT INFORMATION
  Report Type: Spontaneous
  Country: US (occurrence: US)
  Receive Date: 20111010
  Receipt Date: 20130524
  Transmission Date: 20140414
  Serious: Yes (Other)
  Sender: FDA-Public Use
  Company Number: US-BAYER-2011-092698

PATIENT
  Age: 34 Year
  Sex: Female
  Weight: 77.1 kg

DRUGS (8)
  1. YAZ [Suspect]
     Indication: CONTRACEPTION
     Dosage: UNK
     Dates: start: 200704, end: 200908
  2. BALZIVA [Concomitant]
     Dosage: UNK
     Dates: end: 20101026
  3. AVIANE [Concomitant]
  4. BALEIVA [Concomitant]
  5. ADVIL [Concomitant]
     Indication: DYSMENORRHOEA
     Dosage: 200 MG,  2 TIMES MONTHLY
     Route: 048
  6. MOTRIN [Concomitant]
     Indication: LIGAMENT SPRAIN
     Dosage: 600 MG, QD
  7. DONNATAL [Concomitant]
  8. ALIMENTARY TRACT AND METABOLISM [Concomitant]

REACTIONS (6)
  - Injury [None]
  - Emotional distress [None]
  - Cholelithiasis [None]
  - Bile duct stone [None]
  - Cholecystitis [None]
  - Cholelithiasis [None]
